APPROVED DRUG PRODUCT: BACLOFEN
Active Ingredient: BACLOFEN
Strength: 20MG
Dosage Form/Route: TABLET;ORAL
Application: A078401 | Product #001 | TE Code: AB
Applicant: NORTHSTAR HEALTHCARE HOLDINGS LTD
Approved: Sep 18, 2009 | RLD: No | RS: No | Type: RX